FAERS Safety Report 14388401 (Version 1)
Quarter: 2018Q1

REPORT INFORMATION
  Report Type: Spontaneous
  Country: US (occurrence: US)
  Receive Date: 20180115
  Receipt Date: 20180115
  Transmission Date: 20180509
  Serious: Yes (Other)
  Sender: FDA-Public Use
  Company Number: US-SA-2017SA204207

PATIENT
  Age: 53 Year
  Sex: Female
  Weight: 90 kg

DRUGS (13)
  1. TAXOTERE [Suspect]
     Active Substance: DOCETAXEL
     Indication: BREAST CANCER FEMALE
     Route: 051
     Dates: start: 20070517, end: 20070517
  2. ATIVAN [Concomitant]
     Active Substance: LORAZEPAM
  3. HEPARIN [Concomitant]
     Active Substance: HEPARIN SODIUM
  4. ANZEMET [Concomitant]
     Active Substance: DOLASETRON MESYLATE
  5. DECADRON [Concomitant]
     Active Substance: DEXAMETHASONE
  6. EMLA [Concomitant]
     Active Substance: LIDOCAINE\PRILOCAINE
  7. ARIMIDEX [Concomitant]
     Active Substance: ANASTROZOLE
  8. ADRIAMYCIN [Concomitant]
     Active Substance: DOXORUBICIN HYDROCHLORIDE
  9. NEULASTA [Concomitant]
     Active Substance: PEGFILGRASTIM
  10. TAXOTERE [Suspect]
     Active Substance: DOCETAXEL
     Indication: BREAST CANCER FEMALE
     Route: 051
     Dates: start: 20070329, end: 20070329
  11. NEOSAR [Concomitant]
     Active Substance: CYCLOPHOSPHAMIDE
  12. CYTOXAN [Concomitant]
     Active Substance: CYCLOPHOSPHAMIDE
  13. ONDANSETRON [Concomitant]
     Active Substance: ONDANSETRON

REACTIONS (1)
  - Alopecia [Not Recovered/Not Resolved]

NARRATIVE: CASE EVENT DATE: 20071117
